FAERS Safety Report 8624920-7 (Version None)
Quarter: 2012Q3

REPORT INFORMATION
  Report Type: 
  Country: None (occurrence: None)
  Receive Date: 20120827
  Receipt Date: 20120821
  Transmission Date: 20120928
  Serious: Yes (Other)
  Sender: FDA-Public Use
  Company Number: PHHY2012MX009375

PATIENT
  Sex: Female

DRUGS (11)
  1. LAMOTRIGINE [Concomitant]
     Indication: BIPOLAR I DISORDER
     Dosage: 0.5 DF, PER DAY
     Dates: start: 20100101
  2. LEXAPRO [Concomitant]
     Indication: DEPRESSION
     Dosage: 0.5 DF, PER DAY
     Dates: start: 20100101
  3. EXFORGE HCT [Suspect]
     Indication: HYPERTENSION
     Dosage: 1 DF (320/10/25 MG) PER DAY
     Dates: start: 20120118
  4. RASILEZ [Concomitant]
     Indication: HYPERTENSION
     Dosage: 1 DF, UNK
     Dates: start: 20111001
  5. OMEPRAZOLE [Concomitant]
     Indication: ABDOMINAL DISCOMFORT
     Dosage: 1 DF, PER DAY
     Dates: start: 20080101
  6. ATORVASTATIN [Concomitant]
     Indication: BLOOD CHOLESTEROL
     Dosage: 1 DF, PER DAY
     Dates: start: 20090101
  7. BISOPROLOL FUMARATE [Concomitant]
     Indication: HYPERTENSION
     Dosage: 1 DF, DAILY
     Dates: start: 20110801
  8. WELLBUTRIN [Concomitant]
     Indication: DEPRESSION
     Dosage: 0.5 DF, PER DAY
     Dates: start: 20100101
  9. TRANXENE [Concomitant]
     Indication: SLEEP DISORDER
     Dosage: 1 DF, PER DAY
     Dates: start: 20080101
  10. LAXOBERON [Concomitant]
     Dosage: 1 DF, PER DAY
     Dates: start: 20000201
  11. METAMUCIL-2 [Concomitant]
     Dosage: 1 DF, QD

REACTIONS (4)
  - RENAL ARTERY STENOSIS [None]
  - MELANOCYTIC NAEVUS [None]
  - BLOOD PRESSURE INADEQUATELY CONTROLLED [None]
  - OEDEMA PERIPHERAL [None]
